APPROVED DRUG PRODUCT: E-Z SCRUB 241
Active Ingredient: POVIDONE-IODINE
Strength: 10%
Dosage Form/Route: SPONGE;TOPICAL
Application: N019476 | Product #001
Applicant: BECTON DICKINSON AND CO
Approved: Jan 7, 1987 | RLD: Yes | RS: No | Type: DISCN